FAERS Safety Report 8400597-0 (Version None)
Quarter: 2012Q2

REPORT INFORMATION
  Report Type: 
  Country: None (occurrence: None)
  Receive Date: 20120531
  Receipt Date: 20110620
  Transmission Date: 20120825
  Serious: No
  Sender: FDA-Public Use
  Company Number: US-NOVEN-11US002668

PATIENT
  Sex: Male
  Weight: 43.991 kg

DRUGS (2)
  1. ABILIFY [Concomitant]
     Indication: DEPRESSION
     Dosage: 15 MG, QD
     Route: 048
  2. DAYTRANA [Suspect]
     Indication: ATTENTION DEFICIT/HYPERACTIVITY DISORDER
     Dosage: 30MG QD
     Route: 062
     Dates: start: 20110617

REACTIONS (4)
  - INCORRECT DRUG ADMINISTRATION DURATION [None]
  - APPLICATION SITE ERYTHEMA [None]
  - APPLICATION SITE PRURITUS [None]
  - APPLICATION SITE WARMTH [None]
